FAERS Safety Report 25620959 (Version 1)
Quarter: 2025Q3

REPORT INFORMATION
  Report Type: Spontaneous
  Country: US (occurrence: US)
  Receive Date: 20250730
  Receipt Date: 20250730
  Transmission Date: 20251020
  Serious: Yes (Other)
  Sender: AMNEAL
  Company Number: US-AMNEAL-2024-AMRX-04362

PATIENT
  Age: 28 Year
  Sex: Male
  Weight: 86.168 kg

DRUGS (1)
  1. BACLOFEN [Suspect]
     Active Substance: BACLOFEN
     Indication: Product used for unknown indication
     Dosage: 2000 MCG/ML, 100 MICROGRAM, QD
     Route: 065

REACTIONS (3)
  - Weight fluctuation [Unknown]
  - Device dislocation [Unknown]
  - Device breakage [Unknown]

NARRATIVE: CASE EVENT DATE: 20241105
